FAERS Safety Report 22639519 (Version 1)
Quarter: 2023Q2

REPORT INFORMATION
  Report Type: Spontaneous
  Country: ZA (occurrence: ZA)
  Receive Date: 20230626
  Receipt Date: 20230626
  Transmission Date: 20230721
  Serious: Yes (Death, Other)
  Sender: FDA-Public Use
  Company Number: ZA-AstraZeneca-2023A143743

PATIENT
  Age: 76 Day
  Sex: Female
  Weight: 1.4 kg

DRUGS (1)
  1. SYNAGIS [Suspect]
     Active Substance: PALIVIZUMAB
     Indication: Antiviral prophylaxis
     Dosage: 15 MG/KG MONTHLY
     Route: 030
     Dates: start: 20230531

REACTIONS (1)
  - Death [Fatal]

NARRATIVE: CASE EVENT DATE: 20230602
